FAERS Safety Report 8976380 (Version 7)
Quarter: 2013Q4

REPORT INFORMATION
  Report Type: Report from Study
  Country: NZ (occurrence: NZ)
  Receive Date: 20121220
  Receipt Date: 20131016
  Transmission Date: 20140711
  Serious: Yes (Hospitalization)
  Sender: FDA-Public Use
  Company Number: NZ-ROCHE-1164693

PATIENT
  Age: 52 Year
  Sex: Female

DRUGS (11)
  1. RO 5190591 (HCV PROTEASE INHIBITOR) [Suspect]
     Indication: CHRONIC HEPATITIS C
     Route: 048
     Dates: start: 20120615
  2. RO 5190591 (HCV PROTEASE INHIBITOR) [Suspect]
     Indication: HEPATIC CIRRHOSIS
  3. RO 5024048 (HCV POLYMERASE INHIBITOR) [Suspect]
     Indication: CHRONIC HEPATITIS C
     Route: 048
     Dates: start: 20120615
  4. RO 5024048 (HCV POLYMERASE INHIBITOR) [Suspect]
     Indication: HEPATIC CIRRHOSIS
  5. PEG-INTERFERON ALFA 2A [Suspect]
     Indication: CHRONIC HEPATITIS C
     Route: 058
     Dates: start: 20120615
  6. PEG-INTERFERON ALFA 2A [Suspect]
     Indication: HEPATIC CIRRHOSIS
  7. RIBAVIRIN [Suspect]
     Indication: CHRONIC HEPATITIS C
     Route: 048
     Dates: start: 20120615
  8. RIBAVIRIN [Suspect]
     Indication: HEPATIC CIRRHOSIS
  9. RITONAVIR [Suspect]
     Indication: CHRONIC HEPATITIS C
     Route: 065
  10. PARACETAMOL [Concomitant]
     Route: 065
     Dates: start: 20120614
  11. HYDROCORTISONE [Concomitant]
     Route: 061
     Dates: start: 20121031

REACTIONS (1)
  - Corneal infection [Recovered/Resolved]
